FAERS Safety Report 6131130-4 (Version None)
Quarter: 2009Q1

REPORT INFORMATION
  Report Type: 
  Country: None (occurrence: None)
  Receive Date: 20090325
  Receipt Date: 20090311
  Transmission Date: 20090719
  Serious: Yes (Other)
  Sender: FDA-Public Use
  Company Number: US-PFIZER INC-2009175863

PATIENT
  Sex: Female
  Weight: 52.1 kg

DRUGS (3)
  1. CHANTIX [Suspect]
     Indication: SMOKING CESSATION THERAPY
     Dosage: UNK
     Dates: start: 20090225
  2. SPIRIVA [Concomitant]
     Indication: EMPHYSEMA
     Dosage: UNK
  3. LUNESTA [Concomitant]
     Dosage: UNK
     Dates: start: 20090201

REACTIONS (7)
  - AGITATION [None]
  - DISTURBANCE IN ATTENTION [None]
  - FATIGUE [None]
  - HEADACHE [None]
  - INSOMNIA [None]
  - NAUSEA [None]
  - SURGERY [None]
